FAERS Safety Report 12927911 (Version 4)
Quarter: 2017Q1

REPORT INFORMATION
  Report Type: Spontaneous
  Country: US (occurrence: US)
  Receive Date: 20161110
  Receipt Date: 20170104
  Transmission Date: 20170428
  Serious: No
  Sender: FDA-Public Use
  Company Number: US-TAIHO ONCOLOGY INC-EU-2016-02894

PATIENT
  Sex: Female

DRUGS (11)
  1. BENICAR [Concomitant]
     Active Substance: OLMESARTAN MEDOXOMIL
     Dosage: NI
  2. MAGNESIUM [Concomitant]
     Active Substance: MAGNESIUM
     Dosage: NI
  3. LONSURF [Suspect]
     Active Substance: TIPIRACIL HYDROCHLORIDE\TRIFLURIDINE
     Indication: COLON CANCER
     Route: 048
     Dates: start: 20161005
  4. LORATADINE. [Concomitant]
     Active Substance: LORATADINE
     Dosage: NI
  5. POTASSIUM [Concomitant]
     Active Substance: POTASSIUM
     Dosage: NI
  6. TYLENOL WITH CODEINE [Concomitant]
     Active Substance: ACETAMINOPHEN\CODEINE PHOSPHATE
     Dosage: NI
  7. HYDROCHLOROTHIAZIDE/VALSARTAN [Concomitant]
     Dosage: NI
  8. LONSURF [Suspect]
     Active Substance: TIPIRACIL HYDROCHLORIDE\TRIFLURIDINE
     Indication: COLON CANCER
  9. TYLENOL [Concomitant]
     Active Substance: ACETAMINOPHEN
     Dosage: NI
  10. AMLODIPINE [Concomitant]
     Active Substance: AMLODIPINE BESYLATE
     Dosage: NI
  11. ZOLOFT [Concomitant]
     Active Substance: SERTRALINE HYDROCHLORIDE
     Dosage: NI

REACTIONS (8)
  - Dizziness [Unknown]
  - Nausea [Not Recovered/Not Resolved]
  - Fatigue [Not Recovered/Not Resolved]
  - Abdominal pain [Not Recovered/Not Resolved]
  - Multiple drug therapy [Unknown]
  - Asthenia [Not Recovered/Not Resolved]
  - Chills [Unknown]
  - Abdominal pain upper [Not Recovered/Not Resolved]

NARRATIVE: CASE EVENT DATE: 2016
